FAERS Safety Report 5933692-6 (Version None)
Quarter: 2008Q4

REPORT INFORMATION
  Report Type: 
  Country: None (occurrence: None)
  Receive Date: 20081027
  Receipt Date: 20080922
  Transmission Date: 20090506
  Serious: Yes (Hospitalization)
  Sender: FDA-Public Use
  Company Number: 2008AP002057

PATIENT
  Age: 60 Year
  Sex: Female

DRUGS (7)
  1. PAROXETINE HCL [Suspect]
     Indication: DEPRESSION
     Dosage: PO
     Route: 048
  2. FENTANYL-100 [Suspect]
     Indication: ANAESTHESIA
     Dosage: 200 UG;IV; 800 UG;IVBOL; 50 UG;IV; 100 UG;IV;QH; 200 UG;QH
     Route: 042
  3. FENTANYL-100 [Suspect]
     Indication: PERIOPERATIVE ANALGESIA
     Dosage: 200 UG;IV; 800 UG;IVBOL; 50 UG;IV; 100 UG;IV;QH; 200 UG;QH
     Route: 042
  4. PROPOFOL [Concomitant]
  5. ATRACURIUM BESYLATE [Concomitant]
  6. ISOFLURANE [Concomitant]
  7. THYROXIN T3 (THYROXIN T3) [Concomitant]

REACTIONS (10)
  - BLOOD ALBUMIN DECREASED [None]
  - BLOOD CREATININE DECREASED [None]
  - DRUG INTERACTION [None]
  - HAEMODILUTION [None]
  - HAEMOGLOBIN DECREASED [None]
  - HYPERTENSION [None]
  - MALIGNANT FIBROUS HISTIOCYTOMA [None]
  - OPERATIVE HAEMORRHAGE [None]
  - PLATELET COUNT DECREASED [None]
  - SEROTONIN SYNDROME [None]
